FAERS Safety Report 9213935 (Version 1)
Quarter: 2013Q1

REPORT INFORMATION
  Report Type: Spontaneous
  Country: US (occurrence: None)
  Receive Date: 20120827
  Receipt Date: 20120827
  Transmission Date: 20140127
  Serious: No
  Sender: FDA-Public Use
  Company Number: 351675

PATIENT
  Age: 64 Year
  Sex: Female

DRUGS (4)
  1. VICTOZA (LIRAGLUTIDE) SOLUTION FOR INJECTION, 6MG/ML [Suspect]
     Indication: TYPE 2 DIABETES MELLITUS
     Route: 058
  2. METFORMIN (METFORMIN) [Concomitant]
  3. ACTOS (PIOGLITAZONE HYDROCHLORIDE) [Concomitant]
  4. GLIPIZIDE (GLIPIZIDE) [Concomitant]

REACTIONS (4)
  - Fatigue [None]
  - Nasopharyngitis [None]
  - Blood glucose decreased [None]
  - Blood glucose increased [None]
